FAERS Safety Report 8053856-8 (Version None)
Quarter: 2012Q1

REPORT INFORMATION
  Report Type: 
  Country: None (occurrence: None)
  Receive Date: 20120110
  Receipt Date: 20111229
  Transmission Date: 20120608
  Serious: Yes (Other)
  Sender: FDA-Public Use
  Company Number: 2011AP003212

PATIENT
  Age: 69 Year
  Sex: Female

DRUGS (4)
  1. CLARITHROMYCIN [Suspect]
     Indication: RESPIRATORY TRACT INFECTION
     Dosage: 500 MG;UNKNOWN;UNK;BID
  2. PREDNISOLONE [Suspect]
     Indication: PRODUCT USED FOR UNKNOWN INDICATION
     Dosage: 30 MG;QD
  3. SERETIDE (SERETIDE) [Suspect]
     Indication: ASTHMA
     Dosage: UNKNOWN;INH;UNKNOWN
     Route: 055
     Dates: start: 20110908
  4. AZITHROMYCIN [Suspect]
     Indication: RESPIRATORY TRACT INFECTION
     Dosage: 500 MG;UNKNOWN;UNK;QD

REACTIONS (8)
  - CONDITION AGGRAVATED [None]
  - DRUG INEFFECTIVE [None]
  - REFUSAL OF TREATMENT BY PATIENT [None]
  - DYSPNOEA [None]
  - FALL [None]
  - CIRCULATORY COLLAPSE [None]
  - ORAL CANDIDIASIS [None]
  - RESPIRATORY TRACT INFECTION FUNGAL [None]
